FAERS Safety Report 8765997 (Version 3)
Quarter: 2014Q4

REPORT INFORMATION
  Report Type: Spontaneous
  Country: US (occurrence: US)
  Receive Date: 20120904
  Receipt Date: 20141211
  Transmission Date: 20150529
  Serious: Yes (Hospitalization, Disabling, Other)
  Sender: FDA-Public Use
  Company Number: US-009507513-0809USA00723

PATIENT
  Sex: Female
  Weight: 39.46 kg

DRUGS (4)
  1. FOSAMAX [Suspect]
     Active Substance: ALENDRONATE SODIUM
     Indication: OSTEOPENIA
     Dosage: 5 MG, TIW
     Route: 048
     Dates: start: 19980529
  2. FOSAMAX [Suspect]
     Active Substance: ALENDRONATE SODIUM
     Dosage: 10 MG, UNK
     Route: 048
     Dates: start: 199901, end: 200808
  3. FOSAMAX [Suspect]
     Active Substance: ALENDRONATE SODIUM
     Dosage: 70 MG, QW
     Route: 048
     Dates: end: 200808
  4. LIPITOR [Concomitant]
     Active Substance: ATORVASTATIN CALCIUM

REACTIONS (32)
  - Radius fracture [Recovered/Resolved]
  - Femur fracture [Recovered/Resolved]
  - Dyspareunia [Unknown]
  - Intramedullary rod insertion [Recovered/Resolved]
  - Subarachnoid haemorrhage [Recovered/Resolved]
  - Dental caries [Unknown]
  - Fatigue [Unknown]
  - Intramedullary rod insertion [Recovered/Resolved]
  - Haematocrit decreased [Recovered/Resolved]
  - Haematocrit decreased [Recovered/Resolved]
  - Gingival disorder [Unknown]
  - Deformity of orbit [Unknown]
  - Gait disturbance [Unknown]
  - Arthralgia [Unknown]
  - Inappropriate schedule of drug administration [Unknown]
  - Osteoarthritis [Unknown]
  - Anxiety [Unknown]
  - Headache [Unknown]
  - Asthenia [Unknown]
  - Gingival disorder [Unknown]
  - Adverse event [Unknown]
  - Hypercholesterolaemia [Unknown]
  - Fall [Not Recovered/Not Resolved]
  - Facial bones fracture [Unknown]
  - Femur fracture [Recovered/Resolved]
  - Road traffic accident [Unknown]
  - Tooth disorder [Unknown]
  - Osteoporosis [Unknown]
  - Osteoporosis [Unknown]
  - Urinary tract infection [Recovered/Resolved]
  - Open reduction of fracture [Unknown]
  - Vitamin D deficiency [Unknown]

NARRATIVE: CASE EVENT DATE: 19980529
